FAERS Safety Report 6764009-5 (Version None)
Quarter: 2010Q2

REPORT INFORMATION
  Report Type: 
  Country: None (occurrence: None)
  Receive Date: 20100610
  Receipt Date: 20100607
  Transmission Date: 20101027
  Serious: Yes (Death)
  Sender: FDA-Public Use
  Company Number: KR-ASTRAZENECA-2010SE26090

PATIENT
  Age: 20814 Day
  Sex: Male
  Weight: 56.7 kg

DRUGS (3)
  1. IRESSA [Suspect]
     Indication: NON-SMALL CELL LUNG CANCER
     Route: 048
     Dates: start: 20050824, end: 20050903
  2. MS CONTIN [Concomitant]
     Indication: PAIN
     Dates: start: 20050824, end: 20050903
  3. MGO [Concomitant]
     Indication: CONSTIPATION
     Dates: start: 20050824, end: 20050903

REACTIONS (1)
  - DISEASE PROGRESSION [None]
